FAERS Safety Report 15621825 (Version 11)
Quarter: 2021Q2

REPORT INFORMATION
  Report Type: Spontaneous
  Country: US (occurrence: US)
  Receive Date: 20181115
  Receipt Date: 20210507
  Transmission Date: 20210716
  Serious: No
  Sender: FDA-Public Use
  Company Number: US-PFIZER INC-2018458218

PATIENT
  Age: 56 Year
  Sex: Female

DRUGS (4)
  1. MENEST [Suspect]
     Active Substance: ESTROGENS, ESTERIFIED
     Dosage: 1.5 DF, 1X/DAY
     Route: 048
  2. MENEST [Suspect]
     Active Substance: ESTROGENS, ESTERIFIED
     Dosage: 1.5 DF, DAILY (TAKE ONE AND A HALF TABLET DAILY)
  3. MENEST [Suspect]
     Active Substance: ESTROGENS, ESTERIFIED
     Dosage: 1.5 DF, DAILY (ONE AND HALF A TAB DAILY)
  4. MENEST [Suspect]
     Active Substance: ESTROGENS, ESTERIFIED
     Dosage: 1.5 DF, DAILY

REACTIONS (2)
  - Palpitations [Unknown]
  - Off label use [Unknown]
